FAERS Safety Report 23699816 (Version 1)
Quarter: 2024Q2

REPORT INFORMATION
  Report Type: Spontaneous
  Country: US (occurrence: US)
  Receive Date: 20240403
  Receipt Date: 20240403
  Transmission Date: 20240715
  Serious: No
  Sender: FDA-Public Use
  Company Number: US-HALEON-USCH2024015841

PATIENT

DRUGS (2)
  1. ABREVA [Suspect]
     Active Substance: DOCOSANOL
     Indication: Blister
     Dosage: UNK
  2. DOCOSANOL [Suspect]
     Active Substance: DOCOSANOL
     Indication: Blister

REACTIONS (1)
  - Product use in unapproved indication [Unknown]
